FAERS Safety Report 13570144 (Version 2)
Quarter: 2017Q2

REPORT INFORMATION
  Report Type: Spontaneous
  Country: US (occurrence: US)
  Receive Date: 20170522
  Receipt Date: 20170522
  Transmission Date: 20170830
  Serious: No
  Sender: FDA-Public Use
  Company Number: US-BIOGEN-2011BI022062

PATIENT
  Age: 49 Year
  Sex: Female

DRUGS (1)
  1. AVONEX [Suspect]
     Active Substance: INTERFERON BETA-1A
     Indication: MULTIPLE SCLEROSIS
     Route: 030
     Dates: start: 20061212

REACTIONS (6)
  - Chromaturia [Unknown]
  - Chest discomfort [Unknown]
  - Ocular icterus [Unknown]
  - Nausea [Recovered/Resolved]
  - Rash papular [Unknown]
  - Mood swings [Unknown]

NARRATIVE: CASE EVENT DATE: 20110614
